FAERS Safety Report 6367699-4 (Version None)
Quarter: 2009Q3

REPORT INFORMATION
  Report Type: 
  Country: None (occurrence: None)
  Receive Date: 20090921
  Receipt Date: 20090917
  Transmission Date: 20100115
  Serious: Yes (Other)
  Sender: FDA-Public Use
  Company Number: AU-ROXANE LABORATORIES, INC.-2009-RO-00955RO

PATIENT
  Age: 74 Year
  Sex: Male

DRUGS (6)
  1. AZATHIOPRINE [Suspect]
     Indication: COLITIS ULCERATIVE
     Dosage: 50 MG
  2. AZATHIOPRINE [Suspect]
     Dosage: 150 MG
  3. PREDNISOLONE [Suspect]
     Indication: COLITIS ULCERATIVE
     Route: 048
  4. PREDNISOLONE [Suspect]
     Dosage: 12.5 MG
  5. 5-ASA [Concomitant]
     Indication: COLITIS
     Route: 061
  6. CORTICOSTEROIDS [Concomitant]
     Indication: COLITIS
     Route: 061

REACTIONS (3)
  - FATIGUE [None]
  - LETHARGY [None]
  - RASH [None]
